APPROVED DRUG PRODUCT: VENLAFAXINE HYDROCHLORIDE
Active Ingredient: VENLAFAXINE HYDROCHLORIDE
Strength: EQ 75MG BASE
Dosage Form/Route: CAPSULE, EXTENDED RELEASE;ORAL
Application: A217767 | Product #002 | TE Code: AB
Applicant: ALEMBIC PHARMACEUTICALS LTD
Approved: Jun 6, 2024 | RLD: No | RS: No | Type: RX